FAERS Safety Report 11903372 (Version 1)
Quarter: 2016Q1

REPORT INFORMATION
  Report Type: Spontaneous
  Country: US (occurrence: US)
  Receive Date: 20160108
  Receipt Date: 20160108
  Transmission Date: 20160526
  Serious: Yes (Hospitalization)
  Sender: FDA-Public Use
  Company Number: US-BIOGEN-2016BI00169013

PATIENT
  Sex: Female

DRUGS (2)
  1. AVONEX [Interacting]
     Active Substance: INTERFERON BETA-1A
     Route: 030
     Dates: start: 20151018
  2. AVONEX [Suspect]
     Active Substance: INTERFERON BETA-1A
     Indication: MULTIPLE SCLEROSIS
     Route: 030
     Dates: start: 20141202, end: 20150301

REACTIONS (7)
  - Influenza like illness [Recovered/Resolved]
  - Blood potassium decreased [Unknown]
  - Fall [Unknown]
  - Scar [Not Recovered/Not Resolved]
  - Stomal hernia [Recovered/Resolved]
  - Maculopathy [Unknown]
  - Patella fracture [Recovered/Resolved]

NARRATIVE: CASE EVENT DATE: 2014
